FAERS Safety Report 23951580 (Version 1)
Quarter: 2024Q2

REPORT INFORMATION
  Report Type: Spontaneous
  Country: US (occurrence: US)
  Receive Date: 20240607
  Receipt Date: 20240607
  Transmission Date: 20240716
  Serious: No
  Sender: FDA-Public Use
  Company Number: US-PFIZER INC-PV202400072372

PATIENT
  Age: 83 Year
  Sex: Female
  Weight: 53.515 kg

DRUGS (1)
  1. INLYTA [Suspect]
     Active Substance: AXITINIB
     Indication: Metastatic renal cell carcinoma
     Dosage: TAKE 3 TABLETS (3 MG DOSE) BY MOUTH 2 TIMES DAILY
     Route: 048

REACTIONS (1)
  - Blood glucose abnormal [Recovering/Resolving]
